FAERS Safety Report 14223597 (Version 1)
Quarter: 2017Q4

REPORT INFORMATION
  Report Type: Spontaneous
  Country: JP (occurrence: JP)
  Receive Date: 20171124
  Receipt Date: 20171124
  Transmission Date: 20180321
  Serious: Yes (Hospitalization, Other)
  Sender: FDA-Public Use
  Company Number: PHJP2017JP009211

PATIENT
  Age: 58 Year
  Sex: Female
  Weight: 78.2 kg

DRUGS (2)
  1. VOTRIENT [Suspect]
     Active Substance: PAZOPANIB HYDROCHLORIDE
     Indication: PELVIC NEOPLASM
  2. VOTRIENT [Suspect]
     Active Substance: PAZOPANIB HYDROCHLORIDE
     Indication: UTERINE LEIOMYOSARCOMA
     Dosage: 800 MG, QD
     Route: 048
     Dates: start: 20151212, end: 20160218

REACTIONS (4)
  - Hypertension [Recovered/Resolved]
  - Haemoglobinaemia [Recovered/Resolved]
  - Polycythaemia [Recovering/Resolving]
  - Blood erythropoietin increased [Recovered/Resolved]

NARRATIVE: CASE EVENT DATE: 201512
